FAERS Safety Report 7227654-9 (Version None)
Quarter: 2011Q1

REPORT INFORMATION
  Report Type: 
  Country: None (occurrence: None)
  Receive Date: 20110114
  Receipt Date: 20110110
  Transmission Date: 20110831
  Serious: No
  Sender: FDA-Public Use
  Company Number: US-PFIZER INC-2011006771

PATIENT
  Age: 66 Year
  Sex: Male
  Weight: 93 kg

DRUGS (1)
  1. ADVIL CONGESTION RELIEF [Suspect]
     Indication: NASAL CONGESTION
     Dosage: 1 DF, EVERY 4 HRS
     Route: 048
     Dates: start: 20101201, end: 20110101

REACTIONS (1)
  - DRUG INEFFECTIVE [None]
